FAERS Safety Report 9845334 (Version 2)
Quarter: 2014Q1

REPORT INFORMATION
  Report Type: Spontaneous
  Country: NO (occurrence: NO)
  Receive Date: 20140127
  Receipt Date: 20140203
  Transmission Date: 20141002
  Serious: Yes (Hospitalization)
  Sender: FDA-Public Use
  Company Number: NO-AMGEN-NORSP2014004888

PATIENT
  Age: 38 Year
  Sex: Male

DRUGS (7)
  1. 5 FLUOROURACIL                     /00098801/ [Concomitant]
     Indication: RECTAL CANCER
     Dosage: UNK
  2. IRINOTECAN [Concomitant]
     Indication: RECTAL CANCER
     Dosage: UNK
  3. AVASTIN                            /01555201/ [Concomitant]
     Indication: RECTAL CANCER
     Dosage: UNK
  4. IMODIUM [Concomitant]
     Dosage: UNK
  5. TRIOBE                             /01079901/ [Concomitant]
     Dosage: UNK
  6. NEULASTA [Suspect]
     Indication: PROPHYLAXIS
     Dosage: 6 MG, ONCE
     Route: 065
     Dates: start: 20131004, end: 20131004
  7. FOLINIC ACID [Concomitant]
     Indication: RECTAL CANCER
     Dosage: UNK

REACTIONS (6)
  - Syncope [Recovered/Resolved]
  - Fall [Recovered/Resolved]
  - Head injury [Recovered/Resolved]
  - Loss of consciousness [Recovered/Resolved]
  - Erythema [Recovered/Resolved]
  - Hypersensitivity [Recovered/Resolved]
